FAERS Safety Report 17169427 (Version 2)
Quarter: 2019Q4

REPORT INFORMATION
  Report Type: Spontaneous
  Country: UA (occurrence: UA)
  Receive Date: 20191218
  Receipt Date: 20191225
  Transmission Date: 20200122
  Serious: Yes (Death, Hospitalization)
  Sender: FDA-Public Use
  Company Number: UA-ROCHE-2498034

PATIENT
  Age: 51 Year
  Sex: Male
  Weight: 120 kg

DRUGS (1)
  1. ACTILYSE [Suspect]
     Active Substance: ALTEPLASE
     Indication: ISCHAEMIC STROKE
     Dosage: 1 IN 1 ONCE
     Route: 042
     Dates: start: 20191206, end: 20191206

REACTIONS (3)
  - Hepatitis [Fatal]
  - Cardiomyopathy [Fatal]
  - Cerebral haemorrhage [Fatal]

NARRATIVE: CASE EVENT DATE: 20191206
